FAERS Safety Report 8403074-6 (Version None)
Quarter: 2012Q2

REPORT INFORMATION
  Report Type: 
  Country: None (occurrence: None)
  Receive Date: 20120601
  Receipt Date: 20120523
  Transmission Date: 20120825
  Serious: Yes (Hospitalization)
  Sender: FDA-Public Use
  Company Number: DE-BRISTOL-MYERS SQUIBB COMPANY-16620205

PATIENT
  Age: 79 Year
  Sex: Male

DRUGS (7)
  1. PEMETREXED DISODIUM [Suspect]
     Indication: NON-SMALL CELL LUNG CANCER
     Dosage: PEMETREXED DISODIUM VIAL
     Route: 065
     Dates: start: 20101013, end: 20110322
  2. CISPLATIN [Suspect]
     Indication: NON-SMALL CELL LUNG CANCER
     Route: 065
     Dates: start: 20101013, end: 20110322
  3. LYRICA [Concomitant]
     Dates: start: 20110701
  4. PANTOPRAZOLE SODIUM [Concomitant]
     Dates: start: 20101124
  5. RAMIPRIL [Concomitant]
     Dates: start: 20110802
  6. NECITUMUMAB [Suspect]
     Indication: NON-SMALL CELL LUNG CANCER
     Route: 065
     Dates: start: 20101013, end: 20110809
  7. MOVIPREP [Concomitant]
     Dates: start: 20101017

REACTIONS (2)
  - HYPERCALCAEMIA [None]
  - RENAL FAILURE [None]
